FAERS Safety Report 8826790 (Version 1)
Quarter: 2012Q4

REPORT INFORMATION
  Report Type: 
  Country: US (occurrence: US)
  Receive Date: 20121005
  Receipt Date: 20121005
  Transmission Date: 20130627
  Serious: Yes (Other)
  Sender: FDA-Public Use
  Company Number: CHPA2012US005634

PATIENT
  Age: 51 Year
  Sex: Female

DRUGS (4)
  1. CONTROL PLP [Suspect]
     Indication: SMOKING CESSATION THERAPY
     Dosage: 21 mg, QD
     Route: 062
     Dates: start: 20120311, end: 20120315
  2. CONTROL PLP [Suspect]
     Dosage: UNK, QD
     Route: 062
     Dates: start: 201203, end: 201203
  3. KLONOPIN [Concomitant]
     Indication: NERVOUSNESS
     Dosage: UNK, UNK
  4. TRAZODONE [Concomitant]
     Indication: SLEEP DISORDER
     Dosage: UNK, UNK

REACTIONS (8)
  - Ankle fracture [Unknown]
  - Fall [Recovered/Resolved]
  - Road traffic accident [Recovered/Resolved]
  - Asthenia [Recovered/Resolved]
  - Feeling abnormal [Recovered/Resolved]
  - Application site pruritus [Recovered/Resolved]
  - Application site pain [Recovered/Resolved]
  - Application site irritation [Recovered/Resolved]
